FAERS Safety Report 6035236-X (Version None)
Quarter: 2009Q1

REPORT INFORMATION
  Report Type: 
  Country: None (occurrence: None)
  Receive Date: 20090109
  Receipt Date: 20081215
  Transmission Date: 20090719
  Serious: Yes (Other)
  Sender: FDA-Public Use
  Company Number: 001#1#2008-00584

PATIENT
  Sex: Male

DRUGS (6)
  1. ROTIGOTINE (NEUPRO-8MG/24H) [Suspect]
     Indication: PARKINSON'S DISEASE
     Dosage: (8 MG QD, DAILY DOSE: 8 MILLIGRAM/24HOURS; UNIT DOSE: 8 MILLIGRAM/24HOURS TRANSDERMAL)
     Route: 062
     Dates: start: 20070501, end: 20080101
  2. AGGRENOX [Suspect]
  3. MADOPAR /00349201/ [Concomitant]
  4. SIFROL [Concomitant]
  5. EXELON /01383202/ [Concomitant]
  6. QUETIAPINE FUMARATE [Concomitant]

REACTIONS (3)
  - APPLICATION SITE ECZEMA [None]
  - DERMATITIS ALLERGIC [None]
  - TRANSIENT ISCHAEMIC ATTACK [None]
